FAERS Safety Report 25684597 (Version 1)
Quarter: 2025Q3

REPORT INFORMATION
  Report Type: Spontaneous
  Country: US (occurrence: US)
  Receive Date: 20250815
  Receipt Date: 20250815
  Transmission Date: 20251021
  Serious: No
  Sender: STALLERGENES
  Company Number: US-STALCOR-2025-AER-02088

PATIENT
  Age: 16 Year
  Sex: Female

DRUGS (1)
  1. PALFORZIA [Suspect]
     Active Substance: PEANUT
     Indication: Food allergy
     Dosage: UP DOSED TO LEVEL 8 AT 160MG
     Route: 048
     Dates: start: 20231115

REACTIONS (5)
  - Eye oedema [Unknown]
  - Erythema [Unknown]
  - Pruritus [Unknown]
  - Sneezing [Unknown]
  - Wheezing [Unknown]

NARRATIVE: CASE EVENT DATE: 20231115
